FAERS Safety Report 5620335-4 (Version None)
Quarter: 2008Q1

REPORT INFORMATION
  Report Type: 
  Country: None (occurrence: None)
  Receive Date: 20080208
  Receipt Date: 20080130
  Transmission Date: 20080703
  Serious: Yes (Hospitalization)
  Sender: FDA-Public Use
  Company Number: FR-ELI_LILLY_AND_COMPANY-FR200801006842

PATIENT
  Age: 60 Year
  Sex: Female

DRUGS (4)
  1. FORTEO [Suspect]
     Indication: OSTEOPOROSIS
     Dosage: 20 UG, DAILY (1/D)
     Route: 058
     Dates: start: 20070711
  2. CORTANCYL [Concomitant]
     Indication: ASTHMA
  3. COLCHIMAX [Concomitant]
     Indication: GOUT
  4. INSULIN [Concomitant]
     Indication: DIABETES MELLITUS

REACTIONS (3)
  - ASTHMA [None]
  - C-REACTIVE PROTEIN INCREASED [None]
  - CHILLS [None]
